FAERS Safety Report 9741104 (Version 2)
Quarter: 2014Q1

REPORT INFORMATION
  Report Type: Report from Study
  Country: JP (occurrence: JP)
  Receive Date: 20131209
  Receipt Date: 20140206
  Transmission Date: 20141002
  Serious: Yes (Hospitalization, Other)
  Sender: FDA-Public Use
  Company Number: JP-TAKEDA-2013TJP003493

PATIENT
  Age: 92 Year
  Sex: Female
  Weight: 49 kg

DRUGS (5)
  1. PIOGLITAZONE, GLIMEPIRIDE [Suspect]
     Indication: TYPE 2 DIABETES MELLITUS
     Dosage: 1 DF, QD
     Route: 048
     Dates: start: 20120810, end: 20121211
  2. MAGLAX [Concomitant]
     Dosage: UNK
     Route: 048
  3. ARICEPT D [Concomitant]
     Dosage: UNK
     Route: 048
  4. GASLON N [Concomitant]
     Dosage: UNK
     Route: 048
  5. LUPRAC [Concomitant]
     Dosage: UNK
     Route: 048

REACTIONS (1)
  - Convulsion [Recovered/Resolved]
